FAERS Safety Report 15693037 (Version 1)
Quarter: 2018Q4

REPORT INFORMATION
  Report Type: Spontaneous
  Country: ES (occurrence: ES)
  Receive Date: 20181206
  Receipt Date: 20181206
  Transmission Date: 20190205
  Serious: Yes (Other)
  Sender: FDA-Public Use
  Company Number: ES-TEVA-2018-ES-984520

PATIENT
  Age: 72 Year
  Sex: Male

DRUGS (1)
  1. RYTMONORM 150 MG TEVA [Suspect]
     Active Substance: PROPAFENONE
     Route: 048
     Dates: start: 2017

REACTIONS (2)
  - Blindness [Not Recovered/Not Resolved]
  - Vision blurred [Not Recovered/Not Resolved]
